FAERS Safety Report 9667843 (Version 2)
Quarter: 2014Q2

REPORT INFORMATION
  Report Type: Spontaneous
  Country: AT (occurrence: AT)
  Receive Date: 20131104
  Receipt Date: 20140515
  Transmission Date: 20141212
  Serious: Yes (Hospitalization)
  Sender: FDA-Public Use
  Company Number: PHHY2013AT121709

PATIENT
  Age: 64 Year
  Sex: Female
  Weight: 120 kg

DRUGS (15)
  1. PAROXAT [Suspect]
     Dosage: 40 MG, UNK
     Dates: start: 20130901, end: 20130912
  2. FENTANYL [Suspect]
     Dosage: 37.5 MG, UNK
     Dates: start: 201301
  3. SAROTEN [Interacting]
     Dosage: 50 OT, UNK
     Dates: start: 20130719, end: 20130914
  4. SAROTEN [Interacting]
     Dosage: 75 MG, UNK
     Dates: start: 20130722, end: 20130722
  5. SAROTEN [Interacting]
     Dosage: 100 MG, UNK
     Dates: start: 20130723, end: 20130914
  6. LYRICA [Suspect]
     Dosage: 600 MG, UNK
     Dates: start: 2009
  7. PRAXITEN [Suspect]
     Dates: start: 2011
  8. SEROQUEL [Suspect]
     Dosage: 400 MG, UNK
     Dates: start: 201101
  9. EUTHYROX [Concomitant]
     Dosage: 125 UG, UNK
  10. AMLODIPINE [Concomitant]
     Dosage: 5 MG, UNK
     Dates: start: 2004
  11. PANTOLOC [Concomitant]
     Dosage: 40 MG, UNK
  12. GLUCOPHAGE [Concomitant]
     Dosage: 2000 MG, UNK
  13. AMELIOR [Concomitant]
     Dates: start: 2011
  14. SIMVASTATIN [Concomitant]
     Dosage: 20 MG, UNK
     Dates: start: 2011
  15. DIAMICRON [Concomitant]
     Dosage: 30 MG, UNK
     Dates: start: 2012

REACTIONS (1)
  - Altered state of consciousness [Recovered/Resolved]
